FAERS Safety Report 6557897-9 (Version None)
Quarter: 2010Q1

REPORT INFORMATION
  Report Type: 
  Country: None (occurrence: None)
  Receive Date: 20100125
  Receipt Date: 20100105
  Transmission Date: 20100710
  Serious: No
  Sender: FDA-Public Use
  Company Number: 2010-00006

PATIENT
  Age: 68 Year
  Sex: Female
  Weight: 104.3273 kg

DRUGS (7)
  1. COLD REMEDY ORAL MIST [Suspect]
     Dosage: QID FOR 1 DAY
     Dates: start: 20100104, end: 20100105
  2. LYRICA [Concomitant]
  3. ARIMIDEX [Concomitant]
  4. CARDIZEM [Concomitant]
  5. CRESTOR [Concomitant]
  6. ASPIRIN [Concomitant]
  7. JELNIQUE [Concomitant]

REACTIONS (1)
  - AGEUSIA [None]
